FAERS Safety Report 9850022 (Version 3)
Quarter: 2014Q3

REPORT INFORMATION
  Report Type: Spontaneous
  Country: JP (occurrence: JP)
  Receive Date: 20140128
  Receipt Date: 20140725
  Transmission Date: 20150326
  Serious: Yes (Death, Hospitalization, Other)
  Sender: FDA-Public Use
  Company Number: PHHY2014JP009052

PATIENT
  Age: 63 Year
  Sex: Female

DRUGS (2)
  1. NEORAL [Suspect]
     Active Substance: CYCLOSPORINE
     Indication: APLASTIC ANAEMIA
     Route: 048
  2. PREDNISOLONE. [Concomitant]
     Active Substance: PREDNISOLONE
     Indication: APLASTIC ANAEMIA

REACTIONS (24)
  - Cardiac hypertrophy [Unknown]
  - Oliguria [Unknown]
  - Glomerulonephropathy [Unknown]
  - Pallor [Unknown]
  - Hypercapnia [Fatal]
  - Condition aggravated [Unknown]
  - Cardiac failure [Unknown]
  - Fluid retention [Unknown]
  - Enterococcal infection [Recovering/Resolving]
  - Respiratory failure [Unknown]
  - Hypoventilation [Unknown]
  - Angiopathy [Unknown]
  - Oesophageal infection [Unknown]
  - Urine output increased [Unknown]
  - Renal disorder [Unknown]
  - Diastolic dysfunction [Unknown]
  - Oesophageal candidiasis [Unknown]
  - Klebsiella infection [Recovering/Resolving]
  - Cellulitis [Unknown]
  - Hypertension [Unknown]
  - Subarachnoid haemorrhage [Recovering/Resolving]
  - Generalised oedema [Unknown]
  - Oedema [Unknown]
  - Blood creatinine abnormal [Unknown]

NARRATIVE: CASE EVENT DATE: 2011
